FAERS Safety Report 11516797 (Version 1)
Quarter: 2015Q3

REPORT INFORMATION
  Report Type: Spontaneous
  Country: US (occurrence: US)
  Receive Date: 20150917
  Receipt Date: 20150917
  Transmission Date: 20151125
  Serious: No
  Sender: FDA-Public Use
  Company Number: US-BIOGENIDEC-2015BI125980

PATIENT
  Sex: Female

DRUGS (1)
  1. TYSABRI [Suspect]
     Active Substance: NATALIZUMAB
     Indication: PRODUCT USED FOR UNKNOWN INDICATION
     Route: 042
     Dates: start: 2014

REACTIONS (5)
  - General physical health deterioration [Unknown]
  - Blood glucose increased [Unknown]
  - General symptom [Unknown]
  - Anxiety [Unknown]
  - Frustration [Unknown]

NARRATIVE: CASE EVENT DATE: 2014
